FAERS Safety Report 20034758 (Version 5)
Quarter: 2022Q1

REPORT INFORMATION
  Report Type: Spontaneous
  Country: US (occurrence: US)
  Receive Date: 20211104
  Receipt Date: 20220114
  Transmission Date: 20220423
  Serious: Yes (Death, Hospitalization, Other)
  Sender: FDA-Public Use
  Company Number: US-PFIZER INC-202101442648

PATIENT
  Age: 38 Year
  Sex: Female
  Weight: 88.4 kg

DRUGS (11)
  1. FENTANYL CITRATE [Suspect]
     Active Substance: FENTANYL CITRATE
     Indication: Caesarean section
     Dosage: 50 UG/ML
  2. FENTANYL CITRATE [Suspect]
     Active Substance: FENTANYL CITRATE
     Dosage: 15 UG ONCE
     Route: 037
     Dates: start: 20211011, end: 20211011
  3. FENTANYL CITRATE [Suspect]
     Active Substance: FENTANYL CITRATE
     Dosage: 15 UG ONCE
     Route: 037
     Dates: start: 20211011, end: 20211011
  4. FENTANYL CITRATE [Suspect]
     Active Substance: FENTANYL CITRATE
     Dosage: 15 UG ONCE
     Route: 037
     Dates: start: 20211011, end: 20211011
  5. MORPHINE SULFATE [Suspect]
     Active Substance: MORPHINE SULFATE
     Indication: Caesarean section
     Dosage: 1 MG/ML
     Dates: start: 20211011, end: 20211011
  6. MORPHINE SULFATE [Suspect]
     Active Substance: MORPHINE SULFATE
     Dosage: 0.1 MG ONCE
     Route: 037
     Dates: start: 20211011, end: 20211011
  7. MARCAINE [Suspect]
     Active Substance: BUPIVACAINE HYDROCHLORIDE
     Indication: Caesarean section
     Dosage: 1.6 ML ONCE
     Route: 037
     Dates: start: 20211011, end: 20211011
  8. PHENYLEPHRINE [Concomitant]
     Active Substance: PHENYLEPHRINE HYDROCHLORIDE
     Dosage: UNK
     Dates: start: 20211011, end: 20211011
  9. OXYTOCIN [Concomitant]
     Active Substance: OXYTOCIN
     Dosage: UNK
     Dates: start: 20211011, end: 20211011
  10. ONDANSETRON [Concomitant]
     Active Substance: ONDANSETRON
     Dosage: UNK
     Dates: start: 20211011, end: 20211011
  11. LIDOCAINE [Concomitant]
     Active Substance: LIDOCAINE
     Dosage: UNK
     Dates: start: 20211011, end: 20211011

REACTIONS (2)
  - Meningitis streptococcal [Fatal]
  - Product contamination [Unknown]

NARRATIVE: CASE EVENT DATE: 20211014
